FAERS Safety Report 24691934 (Version 2)
Quarter: 2024Q4

REPORT INFORMATION
  Report Type: Spontaneous
  Country: CN (occurrence: CN)
  Receive Date: 20241203
  Receipt Date: 20241209
  Transmission Date: 20250114
  Serious: Yes (Death)
  Sender: GE HEALTHCARE
  Company Number: CN-GE HEALTHCARE-2024CSU013647

PATIENT
  Age: 79 Year
  Sex: Male

DRUGS (2)
  1. OMNISCAN [Suspect]
     Active Substance: GADODIAMIDE
     Indication: Diagnostic procedure
     Dosage: UNK UNK, TOTAL
     Route: 065
  2. ETORICOXIB [Concomitant]
     Active Substance: ETORICOXIB
     Indication: Gout
     Route: 048

REACTIONS (1)
  - Death [Fatal]

NARRATIVE: CASE EVENT DATE: 20241122
